FAERS Safety Report 23703168 (Version 1)
Quarter: 2024Q2

REPORT INFORMATION
  Report Type: Report from Study
  Country: US (occurrence: US)
  Receive Date: 20240403
  Receipt Date: 20240403
  Transmission Date: 20240716
  Serious: Yes (Other)
  Sender: FDA-Public Use
  Company Number: US-GILEAD-2024-0668002

PATIENT
  Sex: Female

DRUGS (1)
  1. AMBRISENTAN [Suspect]
     Active Substance: AMBRISENTAN
     Indication: Pulmonary arterial hypertension
     Dosage: 10 MG, QD
     Route: 065
     Dates: start: 20170627

REACTIONS (5)
  - Cardiac failure [Unknown]
  - Rhinorrhoea [Unknown]
  - Nasal congestion [Unknown]
  - Fatigue [Unknown]
  - Hypertension [Unknown]
